FAERS Safety Report 16130856 (Version 1)
Quarter: 2019Q1

REPORT INFORMATION
  Report Type: Spontaneous
  Country: IN (occurrence: IN)
  Receive Date: 20190328
  Receipt Date: 20190328
  Transmission Date: 20190418
  Serious: Yes (Hospitalization, Other)
  Sender: FDA-Public Use
  Company Number: IN-PFIZER INC-2019136138

PATIENT
  Age: 81 Year
  Sex: Female

DRUGS (1)
  1. PALBACE [Suspect]
     Active Substance: PALBOCICLIB
     Indication: BREAST CANCER METASTATIC
     Dosage: 125 MG, 1X/DAY
     Route: 048

REACTIONS (5)
  - Loss of consciousness [Unknown]
  - Product dose omission [Unknown]
  - Diarrhoea [Unknown]
  - Blood sodium decreased [Unknown]
  - Blood glucose decreased [Unknown]
